FAERS Safety Report 9396721 (Version 1)
Quarter: 2013Q3

REPORT INFORMATION
  Report Type: Spontaneous
  Country: US (occurrence: US)
  Receive Date: 20130712
  Receipt Date: 20130712
  Transmission Date: 20140515
  Serious: Yes (Death)
  Sender: FDA-Public Use
  Company Number: US-ROCHE-1247937

PATIENT
  Age: 66 Year
  Sex: Female

DRUGS (1)
  1. XELODA [Suspect]
     Indication: NEOPLASM MALIGNANT
     Dosage: 3 TABLETS BY MOUTH
     Route: 048

REACTIONS (3)
  - Metastases to central nervous system [Fatal]
  - Metastases to bone [Fatal]
  - Metastases to lung [Fatal]
